FAERS Safety Report 25393157 (Version 1)
Quarter: 2025Q2

REPORT INFORMATION
  Report Type: Spontaneous
  Country: GB (occurrence: GB)
  Receive Date: 20250604
  Receipt Date: 20250604
  Transmission Date: 20250716
  Serious: Yes (Other)
  Sender: TEVA
  Company Number: None

PATIENT
  Age: 43 Year
  Sex: Female

DRUGS (2)
  1. OFLOXACIN [Suspect]
     Active Substance: OFLOXACIN
     Indication: Pelvic inflammatory disease
     Route: 065
     Dates: start: 20250520, end: 20250528
  2. METRONIDAZOLE [Concomitant]
     Active Substance: METRONIDAZOLE
     Indication: Pelvic inflammatory disease
     Dates: start: 20250520

REACTIONS (1)
  - Eructation [Recovering/Resolving]

NARRATIVE: CASE EVENT DATE: 20250527
